FAERS Safety Report 18366694 (Version 1)
Quarter: 2020Q4

REPORT INFORMATION
  Report Type: Spontaneous
  Country: CL (occurrence: CL)
  Receive Date: 20201009
  Receipt Date: 20201009
  Transmission Date: 20210114
  Serious: Yes (Other)
  Sender: FDA-Public Use
  Company Number: CL-GLAXOSMITHKLINE-CL2020GSK198455

PATIENT
  Age: 28 Year
  Sex: Male

DRUGS (3)
  1. LAMOTRIGINE. [Suspect]
     Active Substance: LAMOTRIGINE
     Dosage: UNK
  2. CLOBAZAM. [Concomitant]
     Active Substance: CLOBAZAM
     Indication: EPILEPSY
     Dosage: UNK
  3. LAMOTRIGINE. [Suspect]
     Active Substance: LAMOTRIGINE
     Indication: EPILEPSY
     Dosage: 25 MG

REACTIONS (13)
  - Acute febrile neutrophilic dermatosis [Recovered/Resolved]
  - Pustule [Recovered/Resolved]
  - Scab [Recovered/Resolved]
  - C-reactive protein increased [Recovered/Resolved]
  - Skin lesion [Recovered/Resolved]
  - Periorbital swelling [Recovered/Resolved]
  - Face oedema [Recovered/Resolved]
  - Leukocytosis [Recovered/Resolved]
  - Thrombocytosis [Recovered/Resolved]
  - Pyrexia [Recovered/Resolved]
  - Neutrophilia [Recovered/Resolved]
  - Red blood cell sedimentation rate increased [Recovered/Resolved]
  - Skin plaque [Recovered/Resolved]
